FAERS Safety Report 6058199-X (Version None)
Quarter: 2009Q1

REPORT INFORMATION
  Report Type: 
  Country: None (occurrence: None)
  Receive Date: 20090130
  Receipt Date: 20090119
  Transmission Date: 20090719
  Serious: Yes (Hospitalization)
  Sender: FDA-Public Use
  Company Number: AU-PFIZER INC-2008157881

PATIENT

DRUGS (9)
  1. MISOPROSTOL [Suspect]
     Dosage: 200 UG, UNK
     Route: 060
  2. PSYLLIUM HYDROPHILIC MUCILLOID [Concomitant]
     Dosage: UNK
     Dates: start: 20060909
  3. OXYCODONE HYDROCHLORIDE [Concomitant]
     Dosage: UNK
     Dates: start: 20060909
  4. PARACETAMOL [Concomitant]
     Dosage: UNK
     Dates: start: 20060909
  5. URAL [Concomitant]
     Dosage: UNK
     Dates: start: 20060909
  6. METAMUCIL-2 [Concomitant]
     Route: 048
     Dates: start: 20060909
  7. OXYCODONE HYDROCHLORIDE (UNSPECIFIED) [Concomitant]
     Route: 048
     Dates: start: 20060909
  8. PARACETAMOL (UNSPECIFIED) [Concomitant]
     Route: 048
     Dates: start: 20060909
  9. URAL (SODIUM CITROTARTRATE) [Concomitant]
     Route: 048
     Dates: start: 20060909

REACTIONS (6)
  - CHILLS [None]
  - FEELING COLD [None]
  - MALAISE [None]
  - PALLOR [None]
  - PARAESTHESIA ORAL [None]
  - TREMOR [None]
